FAERS Safety Report 8239681-3 (Version None)
Quarter: 2012Q1

REPORT INFORMATION
  Report Type: 
  Country: None (occurrence: None)
  Receive Date: 20120328
  Receipt Date: 20120320
  Transmission Date: 20120608
  Serious: Yes (Hospitalization, Other)
  Sender: FDA-Public Use
  Company Number: US-US-EMD SERONO, INC.-235553J08USA

PATIENT
  Sex: Female

DRUGS (4)
  1. REBIF [Suspect]
     Indication: MULTIPLE SCLEROSIS
     Route: 058
     Dates: start: 20060804
  2. ARICEPT [Concomitant]
     Indication: MEMORY IMPAIRMENT
  3. DEPAKOTE [Concomitant]
     Indication: CONVULSION
  4. STEROIDS [Concomitant]
     Indication: MIGRAINE

REACTIONS (5)
  - INJECTION SITE DISCOLOURATION [None]
  - CONVULSION [None]
  - BACK DISORDER [None]
  - ABDOMINAL PAIN UPPER [None]
  - MULTIPLE SCLEROSIS RELAPSE [None]
